FAERS Safety Report 10085747 (Version 3)
Quarter: 2014Q4

REPORT INFORMATION
  Report Type: Spontaneous
  Country: DE (occurrence: None)
  Receive Date: 20140416
  Receipt Date: 20141105
  Transmission Date: 20150528
  Serious: Yes (Other)
  Sender: FDA-Public Use
  Company Number: 2014-19349

PATIENT
  Age: 75 Year
  Sex: Female

DRUGS (1)
  1. EYLEA [Suspect]
     Active Substance: AFLIBERCEPT
     Indication: MACULAR DEGENERATION
     Dosage: 2MG/0.05MG, INTRAOCULAR
     Route: 031
     Dates: start: 20140318, end: 20140318

REACTIONS (4)
  - Retinal haemorrhage [None]
  - Vitritis [None]
  - Eye irritation [None]
  - Ocular discomfort [None]

NARRATIVE: CASE EVENT DATE: 20140318
